FAERS Safety Report 25524908 (Version 2)
Quarter: 2025Q3

REPORT INFORMATION
  Report Type: Spontaneous
  Country: GB (occurrence: GB)
  Receive Date: 20250707
  Receipt Date: 20250715
  Transmission Date: 20251020
  Serious: Yes (Hospitalization)
  Sender: TEVA
  Company Number: GB-TEVA-VS-3348486

PATIENT
  Age: 71 Year
  Sex: Male

DRUGS (1)
  1. MYCOPHENOLATE MOFETIL [Suspect]
     Active Substance: MYCOPHENOLATE MOFETIL
     Indication: Antisynthetase syndrome
     Route: 065
     Dates: end: 2023

REACTIONS (5)
  - Latent tuberculosis [Unknown]
  - Knee deformity [Unknown]
  - Joint tuberculosis [Unknown]
  - Tuberculosis [Unknown]
  - Fistula [Unknown]

NARRATIVE: CASE EVENT DATE: 20230101
